FAERS Safety Report 6242636-1 (Version None)
Quarter: 2009Q2

REPORT INFORMATION
  Report Type: 
  Country: None (occurrence: None)
  Receive Date: 20090624
  Receipt Date: 20090622
  Transmission Date: 20091009
  Serious: Yes (Other)
  Sender: FDA-Public Use
  Company Number: JP-B.I. PHARMACEUTICALS,INC./RIDGEFIELD-2009-BP-06728NB

PATIENT
  Sex: Male
  Weight: 83.4 kg

DRUGS (2)
  1. MICARDIS [Suspect]
     Indication: HYPERTENSION
     Dosage: 20 MG
     Route: 048
     Dates: start: 20060427
  2. ACTOS [Concomitant]
     Dosage: 15 MG
     Route: 048
     Dates: start: 20060930

REACTIONS (2)
  - OSTEOPOROSIS [None]
  - SALIVARY GLAND NEOPLASM [None]
